FAERS Safety Report 8975419 (Version 1)
Quarter: 2012Q4

REPORT INFORMATION
  Report Type: 
  Country: US (occurrence: US)
  Receive Date: 20121219
  Receipt Date: 20121219
  Transmission Date: 20130627
  Serious: No
  Sender: FDA-Public Use
  Company Number: US-PFIZER INC-2012321017

PATIENT
  Age: 45 Year
  Sex: Female
  Weight: 76.64 kg

DRUGS (3)
  1. LYRICA [Suspect]
     Indication: FIBROMYALGIA
     Dosage: 75 mg, 2x/day
     Route: 048
     Dates: start: 20121113, end: 201212
  2. LYRICA [Suspect]
     Indication: GENERAL BODY PAIN
  3. AMITIZA [Concomitant]
     Dosage: 24 ug, 2x/day

REACTIONS (1)
  - Drug ineffective [Unknown]
